FAERS Safety Report 6487310-1 (Version None)
Quarter: 2009Q4

REPORT INFORMATION
  Report Type: 
  Country: None (occurrence: None)
  Receive Date: 20091210
  Receipt Date: 20091130
  Transmission Date: 20100525
  Serious: Yes (Other)
  Sender: FDA-Public Use
  Company Number: GB-B.I. PHARMACEUTICALS,INC./RIDGEFIELD-2009-UK-00854UK

PATIENT
  Sex: Female

DRUGS (8)
  1. PRAMIPEXOLE DIHYDROCHLORIDE [Suspect]
     Indication: PARKINSON'S DISEASE
     Dosage: 2100 MCG
     Route: 048
     Dates: start: 20080401
  2. MADOPAR [Concomitant]
     Indication: PARKINSON'S DISEASE
     Dosage: MADOPAR (COMBINATION OF LEVODOPA 600 MG)
     Route: 048
  3. SIMVASTATIN [Concomitant]
     Indication: BLOOD CHOLESTEROL INCREASED
     Dosage: 20 MG
     Route: 048
  4. ASPIRIN [Concomitant]
  5. RISEDRONATE SODIUM [Concomitant]
  6. OMEPPRAZOLE [Concomitant]
     Indication: OESOPHAGITIS
     Dosage: 20 MG
     Route: 048
     Dates: start: 20050101
  7. IRON [Concomitant]
  8. SOLIFENACIN [Concomitant]
     Indication: BLADDER DISORDER
     Dosage: 5 MG
     Route: 048

REACTIONS (2)
  - VISUAL ACUITY REDUCED [None]
  - VISUAL FIELD DEFECT [None]
